FAERS Safety Report 6718695-6 (Version None)
Quarter: 2010Q2

REPORT INFORMATION
  Report Type: 
  Country: None (occurrence: None)
  Receive Date: 20100507
  Receipt Date: 20100419
  Transmission Date: 20101027
  Serious: Yes (Hospitalization)
  Sender: FDA-Public Use
  Company Number: 1-22309881

PATIENT
  Age: 65 Year
  Sex: Female
  Weight: 57.6068 kg

DRUGS (5)
  1. WARFARIN SODIUM [Suspect]
     Indication: AORTIC VALVE REPLACEMENT
     Dosage: 5MG DAILY 6X/WK; 7.5MG 1X/WK, ORAL
     Route: 048
     Dates: start: 20100101, end: 20100417
  2. FORTEO [Concomitant]
  3. LEVOTHYROXINE SODIUM [Concomitant]
  4. CITALOPRAM [Concomitant]
  5. TOPROL-XL [Concomitant]

REACTIONS (11)
  - ANAEMIA [None]
  - BACK PAIN [None]
  - CHROMATURIA [None]
  - CONTUSION [None]
  - FALL [None]
  - FLANK PAIN [None]
  - HAEMATURIA [None]
  - HAEMORRHAGE URINARY TRACT [None]
  - HIP FRACTURE [None]
  - HYPOPHAGIA [None]
  - INTERNATIONAL NORMALISED RATIO INCREASED [None]
